FAERS Safety Report 12168997 (Version 4)
Quarter: 2016Q2

REPORT INFORMATION
  Report Type: Report from Study
  Country: GB (occurrence: GB)
  Receive Date: 20160310
  Receipt Date: 20160406
  Transmission Date: 20160815
  Serious: Yes (Hospitalization, Other)
  Sender: FDA-Public Use
  Company Number: GB-VERTEX PHARMACEUTICALS-2016-001388

PATIENT
  Age: 27 Year
  Sex: Male
  Weight: 56 kg

DRUGS (22)
  1. MEROPENEM. [Concomitant]
     Active Substance: MEROPENEM
     Indication: INFECTIVE PULMONARY EXACERBATION OF CYSTIC FIBROSIS
     Dosage: 2 G, TID
     Route: 042
     Dates: start: 20160217
  2. URSODEOXYCHOLIC ACID [Concomitant]
     Active Substance: URSODIOL
     Indication: CYSTIC FIBROSIS HEPATIC DISEASE
     Dosage: 500 MG, BID
     Route: 048
     Dates: start: 1998
  3. RANITIDINE. [Concomitant]
     Active Substance: RANITIDINE
     Indication: GASTROOESOPHAGEAL REFLUX DISEASE
     Dosage: 150 MG, BID
     Route: 048
     Dates: start: 201107
  4. DORNASE ALFA [Concomitant]
     Active Substance: DORNASE ALFA
     Indication: SPUTUM INCREASED
     Dosage: 2.5 MG, QD VIA NEBULIZER
     Route: 055
     Dates: start: 20160227
  5. HYDROCORTISONE. [Concomitant]
     Active Substance: HYDROCORTISONE
     Dosage: 200 MG, BID
     Route: 042
     Dates: start: 20160224, end: 20160226
  6. LEVEMIR [Concomitant]
     Active Substance: INSULIN DETEMIR
     Indication: CYSTIC FIBROSIS RELATED DIABETES
     Dosage: WITH EVENING MEAL
     Dates: start: 20160226
  7. FLUCLOXACILLIN [Concomitant]
     Active Substance: FLUCLOXACILLIN
     Indication: STAPHYLOCOCCAL INFECTION
     Dosage: 1 G, BID
     Route: 048
     Dates: start: 20140424
  8. AZITHROMYCIN ANHYDROUS. [Concomitant]
     Active Substance: AZITHROMYCIN ANHYDROUS
     Indication: CYSTIC FIBROSIS
     Dosage: 500 MG, ON MON, WED, FRI
     Route: 048
     Dates: start: 2005
  9. MULTIVITAMINS [Concomitant]
     Active Substance: VITAMINS
     Indication: MALABSORPTION
     Dosage: 3 DF, QD
     Route: 048
     Dates: start: 1988
  10. NOVORAPID [Concomitant]
     Active Substance: INSULIN ASPART
     Indication: CYSTIC FIBROSIS RELATED DIABETES
     Dosage: AS DIRECTED WITH MEALS
  11. MEGESTROL ACETATE. [Concomitant]
     Active Substance: MEGESTROL ACETATE
     Indication: INCREASED APPETITE
     Dosage: 160 MG, QD
     Route: 048
     Dates: start: 201011
  12. TRANEXAMIC ACID. [Concomitant]
     Active Substance: TRANEXAMIC ACID
     Indication: HAEMOPTYSIS
     Dosage: 1 G, BID
     Route: 048
     Dates: start: 20130205
  13. PREDNISOLONE. [Concomitant]
     Active Substance: PREDNISOLONE
     Dosage: 20 MG, QD
     Route: 048
     Dates: start: 20160224
  14. TOBRAMYCIN. [Concomitant]
     Active Substance: TOBRAMYCIN
     Indication: INFECTIVE PULMONARY EXACERBATION OF CYSTIC FIBROSIS
     Dosage: 360 MG, QD
     Route: 042
     Dates: start: 20160217
  15. HYDROCORTISONE. [Concomitant]
     Active Substance: HYDROCORTISONE
     Dosage: 100 UNK, UNK
     Route: 042
     Dates: start: 20160227, end: 20160302
  16. CREON [Concomitant]
     Active Substance: PANCRELIPASE AMYLASE\PANCRELIPASE LIPASE\PANCRELIPASE PROTEASE
     Indication: PANCREATIC INSUFFICIENCY
     Dosage: AS DIRECTED WITH FOOD
     Route: 048
     Dates: start: 1988
  17. VITAMIN E [Concomitant]
     Active Substance: .ALPHA.-TOCOPHEROL
     Indication: MALABSORPTION
     Dosage: 200 UT, QD
     Route: 048
     Dates: start: 1988
  18. VITAMIN K [Concomitant]
     Active Substance: PHYTONADIONE
     Indication: CYSTIC FIBROSIS HEPATIC DISEASE
     Dosage: 10 MG, QD
     Route: 048
     Dates: start: 1998
  19. SODIUM CHLORIDE. [Concomitant]
     Active Substance: SODIUM CHLORIDE
     Indication: SPUTUM INCREASED
     Dosage: 4 ML, BID VIA NEBULISER
     Route: 055
     Dates: start: 2015
  20. ORKAMBI [Suspect]
     Active Substance: IVACAFTOR\LUMACAFTOR
     Indication: CYSTIC FIBROSIS
     Dosage: 2 DF, BID
     Route: 048
     Dates: start: 20160223, end: 20160229
  21. OMEPRAZOLE. [Concomitant]
     Active Substance: OMEPRAZOLE
     Indication: GASTROOESOPHAGEAL REFLUX DISEASE
     Dosage: 20 MG, BID
     Route: 048
     Dates: start: 201009
  22. PREDNISOLONE. [Concomitant]
     Active Substance: PREDNISOLONE
     Indication: CYSTIC FIBROSIS LUNG
     Dosage: 10 MG, QD
     Route: 048
     Dates: end: 20160223

REACTIONS (4)
  - Dyspnoea [Recovered/Resolved]
  - Infective pulmonary exacerbation of cystic fibrosis [Recovered/Resolved]
  - Supraventricular tachycardia [Recovered/Resolved]
  - Oxygen saturation decreased [Recovered/Resolved]

NARRATIVE: CASE EVENT DATE: 20160224
